FAERS Safety Report 8572390-X (Version None)
Quarter: 2012Q3

REPORT INFORMATION
  Report Type: 
  Country: None (occurrence: None)
  Receive Date: 20120806
  Receipt Date: 20120730
  Transmission Date: 20120928
  Serious: Yes (Hospitalization, Disabling)
  Sender: FDA-Public Use
  Company Number: US-009507513-2010SP050757

PATIENT

DRUGS (6)
  1. ALBUTEROL [Concomitant]
     Indication: ASTHMA
     Dosage: UNK UNK, PRN
     Dates: start: 20000101
  2. IRON (UNSPECIFIED) [Concomitant]
     Dosage: 326 MG, QD
  3. CYANOCOBALAMIN [Concomitant]
     Dosage: 500 MG, QD
  4. MINERALS (UNSPECIFIED) (+) VITAMINS (UNSPECIFIED) [Concomitant]
     Dosage: UNK UNK, QD
  5. NUVARING [Suspect]
     Indication: CONTRACEPTION
     Dates: start: 20061201, end: 20080101
  6. PLASMA PROTEIN FRACTION (HUMAN) [Concomitant]
     Dosage: UNK UNK, BID
     Dates: start: 20010101

REACTIONS (6)
  - MENSTRUAL DISORDER [None]
  - HYPOTENSION [None]
  - DEEP VEIN THROMBOSIS [None]
  - MENISCUS LESION [None]
  - LIGAMENT INJURY [None]
  - DYSPNOEA [None]
